FAERS Safety Report 5393573-6 (Version None)
Quarter: 2007Q3

REPORT INFORMATION
  Report Type: 
  Country: None (occurrence: None)
  Receive Date: 20070723
  Receipt Date: 20060828
  Transmission Date: 20080115
  Serious: No
  Sender: FDA-Public Use
  Company Number: A0618683A

PATIENT
  Sex: Female

DRUGS (1)
  1. AVANDIA [Suspect]
     Indication: DRUG USE FOR UNKNOWN INDICATION
     Dosage: 8MG PER DAY
     Route: 065

REACTIONS (5)
  - ABDOMINAL DISTENSION [None]
  - BACK PAIN [None]
  - EYE SWELLING [None]
  - NAUSEA [None]
  - OEDEMA PERIPHERAL [None]
